FAERS Safety Report 9298375 (Version 2)
Quarter: 2013Q3

REPORT INFORMATION
  Report Type: Spontaneous
  Country: US (occurrence: None)
  Receive Date: 20121009
  Receipt Date: 20130815
  Transmission Date: 20140515
  Serious: Yes (Hospitalization, Other)
  Sender: FDA-Public Use
  Company Number: ADR-2012-00870

PATIENT
  Age: 47 Year
  Sex: Female

DRUGS (5)
  1. BACLOFEN [Suspect]
  2. CLONIDINE [Concomitant]
  3. DROPERIDOL [Concomitant]
  4. DILAUDID (HYDROMORPHONE) [Concomitant]
  5. BUPIVACAINE [Concomitant]

REACTIONS (2)
  - Pain [None]
  - Pancreatitis acute [None]
